FAERS Safety Report 5744973-3 (Version None)
Quarter: 2008Q2

REPORT INFORMATION
  Report Type: 
  Country: None (occurrence: None)
  Receive Date: 20080521
  Receipt Date: 20080513
  Transmission Date: 20081010
  Serious: Yes (Hospitalization)
  Sender: FDA-Public Use
  Company Number: BR-BAYER-200810926LA

PATIENT
  Age: 33 Year
  Sex: Female

DRUGS (1)
  1. YASMIN [Suspect]
     Indication: ORAL CONTRACEPTION
     Route: 048
     Dates: start: 20041220, end: 20061101

REACTIONS (4)
  - CEREBRAL VENOUS THROMBOSIS [None]
  - HEADACHE [None]
  - HYPERCHOLESTEROLAEMIA [None]
  - SECONDARY HYPOGONADISM [None]
